FAERS Safety Report 11696304 (Version 3)
Quarter: 2015Q4

REPORT INFORMATION
  Report Type: Report from Study
  Country: GB (occurrence: GB)
  Receive Date: 20151104
  Receipt Date: 20151201
  Transmission Date: 20160304
  Serious: Yes (Death)
  Sender: FDA-Public Use
  Company Number: GB-PFIZER INC-2015367206

PATIENT
  Age: 35 Year
  Sex: Female

DRUGS (1)
  1. CRIZOTINIB [Suspect]
     Active Substance: CRIZOTINIB
     Indication: NON-SMALL CELL LUNG CANCER METASTATIC
     Dosage: UNK
     Dates: start: 20110407, end: 20130104

REACTIONS (5)
  - Fatigue [Unknown]
  - Eastern Cooperative Oncology Group performance status worsened [Unknown]
  - Blood creatinine increased [Unknown]
  - Visual impairment [Unknown]
  - Blood alkaline phosphatase increased [Unknown]
